FAERS Safety Report 25194167 (Version 2)
Quarter: 2025Q3

REPORT INFORMATION
  Report Type: Report from Study
  Country: KR (occurrence: KR)
  Receive Date: 20250414
  Receipt Date: 20250811
  Transmission Date: 20251021
  Serious: Yes (Hospitalization, Other)
  Sender: ABBVIE
  Company Number: KR-ABBVIE-6155347

PATIENT
  Age: 70 Year
  Sex: Male
  Weight: 55 kg

DRUGS (44)
  1. VENCLEXTA [Suspect]
     Active Substance: VENETOCLAX
     Indication: Acute myeloid leukaemia
     Route: 048
     Dates: start: 20250210, end: 20250225
  2. VENCLEXTA [Suspect]
     Active Substance: VENETOCLAX
     Indication: Acute myeloid leukaemia
     Route: 048
     Dates: start: 20241120, end: 20241218
  3. VENCLEXTA [Suspect]
     Active Substance: VENETOCLAX
     Indication: Acute myeloid leukaemia
     Route: 048
     Dates: start: 20241230, end: 20250126
  4. VENCLEXTA [Suspect]
     Active Substance: VENETOCLAX
     Indication: Acute myeloid leukaemia
     Route: 048
     Dates: start: 20250305, end: 20250306
  5. COUGH SYRUP [Concomitant]
     Active Substance: DEXTROMETHORPHAN HYDROBROMIDE\GUAIFENESIN
     Indication: Upper respiratory tract infection
     Route: 048
     Dates: start: 20241223
  6. Levoplus [Concomitant]
     Indication: Infection prophylaxis
     Route: 048
     Dates: start: 20241120
  7. Dulackhan [Concomitant]
     Indication: Constipation
     Route: 048
     Dates: start: 20250110, end: 20250120
  8. Dulackhan [Concomitant]
     Indication: Constipation
     Route: 048
     Dates: start: 20250228, end: 20250303
  9. MEPERIDINE HYDROCHLORIDE [Concomitant]
     Active Substance: MEPERIDINE HYDROCHLORIDE
     Indication: Premedication
     Dosage: PETHIDINE HCL DAEWON INJ
     Route: 030
     Dates: start: 20241230, end: 20241230
  10. Dulackhan easy [Concomitant]
     Indication: Constipation
     Route: 048
     Dates: start: 20241122, end: 20241204
  11. REBAMIPIDE [Concomitant]
     Active Substance: REBAMIPIDE
     Indication: Abdominal pain upper
     Route: 048
     Dates: start: 20250118, end: 20250209
  12. DIFLUCAN [Concomitant]
     Active Substance: FLUCONAZOLE
     Indication: Antifungal prophylaxis
     Route: 048
     Dates: start: 20250210, end: 20250323
  13. DIFLUCAN [Concomitant]
     Active Substance: FLUCONAZOLE
     Indication: Antifungal prophylaxis
     Route: 048
     Dates: start: 20241223, end: 20241229
  14. VIDAZA [Concomitant]
     Active Substance: AZACITIDINE
     Indication: Acute myeloid leukaemia
     Dosage: VIDAZA INJ 100MG
     Route: 042
     Dates: start: 20241120, end: 20241126
  15. VIDAZA [Concomitant]
     Active Substance: AZACITIDINE
     Indication: Acute myeloid leukaemia
     Route: 042
     Dates: start: 20250210, end: 20250216
  16. VIDAZA [Concomitant]
     Active Substance: AZACITIDINE
     Indication: Acute myeloid leukaemia
     Route: 042
     Dates: start: 20241230, end: 20250105
  17. LASIX [Concomitant]
     Active Substance: FUROSEMIDE
     Indication: Prophylaxis
     Route: 042
     Dates: start: 20250228
  18. LASIX [Concomitant]
     Active Substance: FUROSEMIDE
     Indication: Prophylaxis
     Route: 042
     Dates: start: 20250319
  19. NOXAFIL [Concomitant]
     Active Substance: POSACONAZOLE
     Indication: Antifungal prophylaxis
     Dosage: GASTRO RESISTANT TAB 100MG
     Route: 048
     Dates: start: 20241122, end: 20250210
  20. NOXAFIL [Concomitant]
     Active Substance: POSACONAZOLE
     Indication: Antifungal prophylaxis
     Dosage: GASTRO RESISTANT TAB 100MG
     Route: 048
     Dates: start: 20241121, end: 20241121
  21. Dong a gaster [Concomitant]
     Indication: Gastrooesophageal reflux disease
     Route: 048
     Dates: start: 20241120, end: 20241204
  22. Aloxif [Concomitant]
     Indication: Prophylaxis of nausea and vomiting
     Route: 042
     Dates: start: 20241120, end: 20241126
  23. Aloxif [Concomitant]
     Indication: Prophylaxis of nausea and vomiting
     Route: 042
     Dates: start: 20241230
  24. Mypol [Concomitant]
     Indication: Pain prophylaxis
     Route: 048
     Dates: start: 20241230
  25. BANAN [Concomitant]
     Active Substance: CEFPODOXIME PROXETIL
     Indication: Infection prophylaxis
     Route: 048
     Dates: start: 20250319, end: 20250323
  26. Phazyme complex [Concomitant]
     Indication: Abdominal pain upper
     Route: 048
     Dates: start: 20250221
  27. Peniramin [Concomitant]
     Indication: Premedication
     Route: 042
     Dates: start: 20250218, end: 20250218
  28. TAGAMET [Concomitant]
     Active Substance: CIMETIDINE
     Indication: Abdominal pain upper
     Dosage: 200MG/2ML
     Route: 042
     Dates: start: 20250118, end: 20250118
  29. MONTMORILLONITE [Concomitant]
     Active Substance: MONTMORILLONITE
     Indication: Diarrhoea
     Route: 048
     Dates: start: 20250227, end: 20250227
  30. Esomezol [Concomitant]
     Indication: Abdominal pain upper
     Route: 048
     Dates: start: 20241223, end: 20250324
  31. Dulackhan [Concomitant]
     Indication: Constipation
     Route: 048
     Dates: start: 20241223, end: 20250109
  32. MAGNESIUM HYDROXIDE [Concomitant]
     Active Substance: MAGNESIUM HYDROXIDE
     Indication: Constipation
     Route: 048
     Dates: start: 20250110, end: 20250310
  33. MAGNESIUM HYDROXIDE [Concomitant]
     Active Substance: MAGNESIUM HYDROXIDE
     Indication: Constipation
     Dosage: DOSE 1000 MG
     Route: 048
     Dates: start: 20241223, end: 20250109
  34. MAGNESIUM HYDROXIDE [Concomitant]
     Active Substance: MAGNESIUM HYDROXIDE
     Indication: Constipation
     Route: 048
     Dates: start: 20241204, end: 20241222
  35. MAGNESIUM HYDROXIDE [Concomitant]
     Active Substance: MAGNESIUM HYDROXIDE
     Indication: Constipation
     Dosage: MAGMIL TAB 500MG/ DOSE 1000 MG
     Route: 048
     Dates: start: 20241121, end: 20241124
  36. Tacenol 8 hours er [Concomitant]
     Indication: Abdominal pain
     Route: 048
     Dates: start: 20250319, end: 20250323
  37. Tacenol 8 hours er [Concomitant]
     Indication: Abdominal pain
     Route: 048
     Dates: start: 20250316, end: 20250316
  38. PANTOPRAZOLE SODIUM [Concomitant]
     Active Substance: PANTOPRAZOLE SODIUM
     Indication: Gastritis prophylaxis
     Route: 042
     Dates: start: 20250313, end: 20250313
  39. ALOXI [Concomitant]
     Active Substance: PALONOSETRON HYDROCHLORIDE
     Indication: Prophylaxis of nausea and vomiting
     Route: 042
     Dates: start: 20241230, end: 20250216
  40. ALOXI [Concomitant]
     Active Substance: PALONOSETRON HYDROCHLORIDE
     Indication: Prophylaxis of nausea and vomiting
     Route: 042
     Dates: start: 20241120, end: 20241126
  41. TRAMADOL HYDROCHLORIDE [Concomitant]
     Active Substance: TRAMADOL HYDROCHLORIDE
     Indication: Abdominal pain
     Route: 042
     Dates: start: 20250313, end: 20250317
  42. TAZOPERAN [Concomitant]
     Indication: Infection prophylaxis
     Route: 042
     Dates: start: 20250313, end: 20250319
  43. TIROPRAMIDE [Concomitant]
     Active Substance: TIROPRAMIDE
     Indication: Abdominal pain
     Route: 048
     Dates: start: 20250316, end: 20250316
  44. TIROPRAMIDE [Concomitant]
     Active Substance: TIROPRAMIDE
     Indication: Abdominal pain
     Route: 048
     Dates: start: 20250319, end: 20250323

REACTIONS (5)
  - Neutropenia [Recovered/Resolved]
  - Hypophagia [Recovered/Resolved]
  - Hypophagia [Recovered/Resolved]
  - Acute myeloid leukaemia [Not Recovered/Not Resolved]
  - Abdominal pain [Recovered/Resolved]

NARRATIVE: CASE EVENT DATE: 20250118
